FAERS Safety Report 13419347 (Version 2)
Quarter: 2017Q3

REPORT INFORMATION
  Report Type: Spontaneous
  Country: US (occurrence: US)
  Receive Date: 20170407
  Receipt Date: 20170727
  Transmission Date: 20171127
  Serious: No
  Sender: FDA-Public Use
  Company Number: US-TEVA-753528ACC

PATIENT
  Age: 46 Year
  Sex: Female

DRUGS (12)
  1. ZOLPIDEM [Concomitant]
     Active Substance: ZOLPIDEM\ZOLPIDEM TARTRATE
  2. VITAMIN B6 [Concomitant]
     Active Substance: PYRIDOXINE HYDROCHLORIDE
  3. AMOXICILLIN. [Concomitant]
     Active Substance: AMOXICILLIN
  4. ASPIRIN. [Concomitant]
     Active Substance: ASPIRIN
  5. COPAXONE [Suspect]
     Active Substance: GLATIRAMER ACETATE
     Indication: MULTIPLE SCLEROSIS
     Route: 058
  6. GABAPENTIN. [Concomitant]
     Active Substance: GABAPENTIN
  7. PRAMIPEXOLE. [Concomitant]
     Active Substance: PRAMIPEXOLE
  8. MIRALAX [Concomitant]
     Active Substance: POLYETHYLENE GLYCOL 3350
  9. ZYRTEC [Concomitant]
     Active Substance: CETIRIZINE HYDROCHLORIDE
  10. ESZOPICLONE. [Concomitant]
     Active Substance: ESZOPICLONE
  11. VITAMIN D3 [Concomitant]
     Active Substance: CHOLECALCIFEROL
  12. VITAMIN B12 [Concomitant]
     Active Substance: CYANOCOBALAMIN

REACTIONS (7)
  - Injection site induration [Not Recovered/Not Resolved]
  - Influenza like illness [Unknown]
  - Injection site mass [Unknown]
  - Injection site erythema [Not Recovered/Not Resolved]
  - Injection site reaction [Not Recovered/Not Resolved]
  - Injection site pain [Unknown]
  - Injection site pruritus [Not Recovered/Not Resolved]

NARRATIVE: CASE EVENT DATE: 20170308
